FAERS Safety Report 4556959-5 (Version None)
Quarter: 2005Q1

REPORT INFORMATION
  Report Type: 
  Country: None (occurrence: None)
  Receive Date: 20050118
  Receipt Date: 20050105
  Transmission Date: 20050727
  Serious: Yes (Hospitalization, Other)
  Sender: FDA-Public Use
  Company Number: 2005006213

PATIENT
  Age: 90 Year
  Sex: Male

DRUGS (1)
  1. FELDENE [Suspect]
     Indication: OSTEOARTHRITIS
     Dosage: UNK (20 MG, UNKNOWN), ORAL
     Route: 048
     Dates: end: 20040826

REACTIONS (3)
  - HAEMOGLOBIN DECREASED [None]
  - HYPOVOLAEMIC SHOCK [None]
  - RECTAL HAEMORRHAGE [None]
